FAERS Safety Report 5904722-2 (Version None)
Quarter: 2008Q3

REPORT INFORMATION
  Report Type: 
  Country: None (occurrence: None)
  Receive Date: 20080909
  Receipt Date: 20080423
  Transmission Date: 20090109
  Serious: Yes (Hospitalization)
  Sender: FDA-Public Use
  Company Number: 163-20785-08031316

PATIENT
  Age: 68 Year
  Sex: Male

DRUGS (4)
  1. THALOMID [Suspect]
     Indication: MULTIPLE MYELOMA
     Dosage: 50 MG, 1 IN 1 D ; 100 MG, 1 IN 1 D
     Dates: start: 20060901, end: 20070901
  2. THALOMID [Suspect]
     Indication: MULTIPLE MYELOMA
     Dosage: 50 MG, 1 IN 1 D ; 100 MG, 1 IN 1 D
     Dates: start: 20071101
  3. MORPHINE [Suspect]
     Indication: BONE PAIN
     Dosage: 60 MG, BID, ORAL
     Route: 048
     Dates: end: 20071101
  4. TRAMADOL HCL [Concomitant]

REACTIONS (3)
  - ABDOMINAL PAIN [None]
  - BONE PAIN [None]
  - CONSTIPATION [None]
